FAERS Safety Report 10078772 (Version 2)
Quarter: 2014Q2

REPORT INFORMATION
  Report Type: Spontaneous
  Country: BR (occurrence: BR)
  Receive Date: 20140415
  Receipt Date: 20140415
  Transmission Date: 20141212
  Serious: Yes (Other)
  Sender: FDA-Public Use
  Company Number: BR-PFIZER INC-2014094237

PATIENT
  Sex: Female

DRUGS (2)
  1. XALATAN [Suspect]
     Indication: GLAUCOMA
     Dosage: 1 GTT, 1X/DAY
  2. XALACOM [Suspect]

REACTIONS (4)
  - Limb discomfort [Unknown]
  - Bedridden [Unknown]
  - Product name confusion [Unknown]
  - Wrong drug administered [Recovered/Resolved]
